FAERS Safety Report 24371884 (Version 1)
Quarter: 2024Q3

REPORT INFORMATION
  Report Type: Spontaneous
  Country: CA (occurrence: CA)
  Receive Date: 20240927
  Receipt Date: 20240927
  Transmission Date: 20241017
  Serious: Yes (Other)
  Sender: AUROBINDO
  Company Number: CA-AUROBINDO-AUR-APL-2024-046558

PATIENT
  Age: 75 Year
  Sex: Female

DRUGS (18)
  1. LACOSAMIDE [Suspect]
     Active Substance: LACOSAMIDE
     Indication: Status epilepticus
     Dosage: UNK
     Route: 065
  2. MIDAZOLAM [Suspect]
     Active Substance: MIDAZOLAM
     Indication: Status epilepticus
     Dosage: 5?10 MG/H
     Route: 065
  3. PHENYTOIN [Suspect]
     Active Substance: PHENYTOIN
     Indication: Status epilepticus
     Dosage: 1000 MILLIGRAM, ONCE A DAY
     Route: 042
  4. PHENYTOIN [Suspect]
     Active Substance: PHENYTOIN
     Dosage: 100 MILLIGRAM, 3 TIMES A DAY
     Route: 048
  5. VALPROIC ACID [Suspect]
     Active Substance: VALPROIC ACID
     Indication: Status epilepticus
     Dosage: 500 MILLIGRAM, 3 TIMES A DAY
     Route: 048
  6. ROSUVASTATIN [Concomitant]
     Active Substance: ROSUVASTATIN\ROSUVASTATIN CALCIUM
     Indication: Dyslipidaemia
     Dosage: UNK
     Route: 065
  7. ADUCANUMAB [Concomitant]
     Active Substance: ADUCANUMAB
     Indication: Dementia Alzheimer^s type
     Dosage: 1 MILLIGRAM/KILOGRAM
     Route: 065
  8. ADUCANUMAB [Concomitant]
     Active Substance: ADUCANUMAB
     Dosage: 3 MILLIGRAM/KILOGRAM
     Route: 065
  9. ADUCANUMAB [Concomitant]
     Active Substance: ADUCANUMAB
     Dosage: 6 MILLIGRAM/KILOGRAM
     Route: 065
  10. ADUCANUMAB [Concomitant]
     Active Substance: ADUCANUMAB
     Dosage: 10 MILLIGRAM/KILOGRAM
     Route: 065
  11. RAMIPRIL [Concomitant]
     Active Substance: RAMIPRIL
     Indication: Hypertension
     Dosage: UNK
     Route: 065
  12. VITAMIN B12 [Concomitant]
     Active Substance: CYANOCOBALAMIN
     Indication: Product used for unknown indication
     Dosage: UNK
     Route: 065
  13. TRAZODONE [Concomitant]
     Active Substance: TRAZODONE HYDROCHLORIDE
     Indication: Product used for unknown indication
     Dosage: UNK
     Route: 065
  14. LORAZEPAM [Concomitant]
     Active Substance: LORAZEPAM
     Indication: Seizure
     Dosage: UNK
     Route: 065
  15. LEVETIRACETAM [Concomitant]
     Active Substance: LEVETIRACETAM
     Indication: Seizure
     Dosage: UNK
     Route: 065
  16. METHYLPREDNISOLONE [Concomitant]
     Active Substance: METHYLPREDNISOLONE
     Indication: Disturbance in attention
     Dosage: UNK
     Route: 065
  17. METHYLPREDNISOLONE [Concomitant]
     Active Substance: METHYLPREDNISOLONE
     Indication: Language disorder
  18. PROPOFOL [Concomitant]
     Active Substance: PROPOFOL
     Indication: Endotracheal intubation
     Dosage: UNK
     Route: 065

REACTIONS (1)
  - Drug ineffective [Unknown]
